FAERS Safety Report 9236607 (Version 1)
Quarter: 2013Q2

REPORT INFORMATION
  Report Type: Spontaneous
  Country: FR (occurrence: FR)
  Receive Date: 20130417
  Receipt Date: 20130417
  Transmission Date: 20140414
  Serious: Yes (Hospitalization)
  Sender: FDA-Public Use
  Company Number: FR-ROCHE-1215120

PATIENT
  Age: 53 Year
  Sex: Male

DRUGS (7)
  1. AVASTIN [Suspect]
     Indication: PRODUCT USED FOR UNKNOWN INDICATION
     Route: 042
     Dates: start: 20130227, end: 20130227
  2. OXALIPLATIN [Suspect]
     Indication: PRODUCT USED FOR UNKNOWN INDICATION
     Route: 042
     Dates: start: 20130227, end: 20130227
  3. BI-PROFENID [Suspect]
     Indication: PRODUCT USED FOR UNKNOWN INDICATION
     Route: 048
     Dates: start: 20130301, end: 20130311
  4. MONOCRIXO [Concomitant]
     Route: 048
  5. SPASFON [Concomitant]
     Route: 048
  6. DOLIPRANE [Concomitant]
     Route: 048
  7. INEXIUM [Concomitant]
     Route: 048
     Dates: start: 20130301

REACTIONS (3)
  - Oesophageal varices haemorrhage [Recovering/Resolving]
  - Portal hypertension [Recovering/Resolving]
  - Anaemia [Recovering/Resolving]
